FAERS Safety Report 20547089 (Version 1)
Quarter: 2022Q1

REPORT INFORMATION
  Report Type: Spontaneous
  Country: US (occurrence: US)
  Receive Date: 20220303
  Receipt Date: 20220303
  Transmission Date: 20220423
  Serious: Yes (Hospitalization, Other)
  Sender: FDA-Public Use
  Company Number: US-INSUD PHARMA-2202US00847

PATIENT

DRUGS (1)
  1. NUVESSA [Suspect]
     Active Substance: METRONIDAZOLE
     Indication: Osteomyelitis
     Dosage: 500 MILLIGRAM TWICE DAILY
     Route: 065
     Dates: start: 2019, end: 2019

REACTIONS (14)
  - Toxic leukoencephalopathy [Recovering/Resolving]
  - Decreased activity [Unknown]
  - Psychomotor retardation [Unknown]
  - Hypophagia [Unknown]
  - Catatonia [Recovering/Resolving]
  - Communication disorder [Recovering/Resolving]
  - Echolalia [Unknown]
  - Mutism [Unknown]
  - Flat affect [Unknown]
  - Stupor [Unknown]
  - Musculoskeletal stiffness [Recovering/Resolving]
  - Posturing [Recovered/Resolved]
  - Waxy flexibility [Unknown]
  - Muscle rigidity [Recovering/Resolving]

NARRATIVE: CASE EVENT DATE: 20190101
